FAERS Safety Report 6785531-1 (Version None)
Quarter: 2010Q2

REPORT INFORMATION
  Report Type: 
  Country: None (occurrence: None)
  Receive Date: 20100623
  Receipt Date: 20100611
  Transmission Date: 20101027
  Serious: Yes (Hospitalization)
  Sender: FDA-Public Use
  Company Number: FR-JNJFOC-20100602360

PATIENT
  Sex: Male
  Weight: 73 kg

DRUGS (8)
  1. GOLIMUMAB [Suspect]
     Indication: COLITIS ULCERATIVE
     Route: 058
  2. GOLIMUMAB [Suspect]
     Route: 058
  3. AZATHIOPRINE [Concomitant]
     Indication: COLITIS ULCERATIVE
     Route: 048
  4. PREDNISOLONE [Concomitant]
     Indication: COLITIS ULCERATIVE
     Route: 058
  5. ISONIAZID [Concomitant]
     Route: 048
  6. RIFAMPICIN [Concomitant]
     Route: 048
  7. FERRIC HYDROXIDE [Concomitant]
     Route: 042
  8. POLYSACCHARIDE-IRON COMPLEX [Concomitant]
     Route: 042

REACTIONS (3)
  - DIZZINESS [None]
  - HEADACHE [None]
  - VOMITING [None]
